FAERS Safety Report 8767567 (Version 2)
Quarter: 2012Q4

REPORT INFORMATION
  Report Type: 
  Country: DK (occurrence: IT)
  Receive Date: 20120904
  Receipt Date: 20120911
  Transmission Date: 20130627
  Serious: Yes (Other)
  Sender: FDA-Public Use
  Company Number: IT-FRI-1000038299

PATIENT
  Age: 36 Year
  Sex: Female

DRUGS (5)
  1. ESCITALOPRAM [Suspect]
     Indication: PSYCHOTIC DISORDER
     Dosage: 20 mg
     Route: 048
     Dates: start: 20120701, end: 20120725
  2. LARGACTIL [Suspect]
     Indication: PSYCHOTIC DISORDER
     Dosage: 150 mg
     Route: 048
     Dates: start: 20120724, end: 20120725
  3. TEGRETOL [Concomitant]
     Dosage: 800 mg
     Route: 048
  4. SEROQUEL [Concomitant]
     Dosage: 300 mg
     Route: 048
  5. LENDORMIN [Concomitant]
     Route: 048

REACTIONS (2)
  - Loss of consciousness [Recovering/Resolving]
  - Off label use [Recovered/Resolved]
